FAERS Safety Report 6635469-5 (Version None)
Quarter: 2010Q1

REPORT INFORMATION
  Report Type: 
  Country: None (occurrence: None)
  Receive Date: 20100315
  Receipt Date: 20090318
  Transmission Date: 20100710
  Serious: No
  Sender: FDA-Public Use
  Company Number: US-ABBOTT-09P-163-0563558-00

PATIENT
  Sex: Male
  Weight: 72.64 kg

DRUGS (2)
  1. DEPAKOTE [Suspect]
     Indication: ANXIETY
     Dosage: UNKNOWN BY THE REPORTER
  2. DEPAKOTE [Suspect]
     Indication: BIPOLAR DISORDER

REACTIONS (2)
  - ANXIETY [None]
  - DRUG INEFFECTIVE [None]
